FAERS Safety Report 8563845-2 (Version None)
Quarter: 2012Q3

REPORT INFORMATION
  Report Type: 
  Country: None (occurrence: None)
  Receive Date: 20120727
  Receipt Date: 20120727
  Transmission Date: 20120928
  Serious: Yes (Hospitalization)
  Sender: FDA-Public Use
  Company Number: None

PATIENT
  Age: 84 Year
  Sex: Male
  Weight: 56.4 kg

DRUGS (10)
  1. RYTHMOL [Concomitant]
  2. METOPROLOL TARTRATE [Concomitant]
  3. M.V.I. [Concomitant]
  4. COUMADIN [Suspect]
     Indication: ATRIAL FIBRILLATION
     Dosage: 2MG DAILY PO CHRONIC
     Route: 048
  5. LISINOPRIL [Concomitant]
  6. LEVOXYL [Concomitant]
  7. TRAMADOL HCL [Concomitant]
  8. PRILOSEC [Concomitant]
  9. SENOKOT [Concomitant]
  10. PRAVACHOL [Concomitant]

REACTIONS (2)
  - HAEMATOMA [None]
  - TENDON RUPTURE [None]
